FAERS Safety Report 11688398 (Version 18)
Quarter: 2021Q2

REPORT INFORMATION
  Report Type: Spontaneous
  Country: US (occurrence: US)
  Receive Date: 20151101
  Receipt Date: 20210416
  Transmission Date: 20210716
  Serious: Yes (Congenital Anomaly, Other)
  Sender: FDA-Public Use
  Company Number: PHEH2015US022085

PATIENT
  Sex: Male

DRUGS (2)
  1. ONDANSETRON HYDROCHLORIDE. [Suspect]
     Active Substance: ONDANSETRON HYDROCHLORIDE
     Indication: FOETAL EXPOSURE DURING PREGNANCY
     Route: 064
  2. ZOFRAN ODT [Suspect]
     Active Substance: ONDANSETRON HYDROCHLORIDE
     Indication: FOETAL EXPOSURE DURING PREGNANCY
     Dosage: MOTHER DOSE: 8 MG, BID
     Route: 064

REACTIONS (79)
  - Congenital anomaly [Unknown]
  - Congenital cardiovascular anomaly [Unknown]
  - Cardiac murmur [Unknown]
  - Galactosaemia [Unknown]
  - Congenital skin disorder [Unknown]
  - Injury [Unknown]
  - Rash [Unknown]
  - Pharyngitis [Unknown]
  - Nausea [Unknown]
  - Oropharyngeal pain [Unknown]
  - Chest pain [Unknown]
  - Pectus excavatum [Unknown]
  - Atrioventricular block complete [Unknown]
  - Foetal exposure during pregnancy [Unknown]
  - Erythema [Unknown]
  - Anxiety [Unknown]
  - Rhinitis [Unknown]
  - Pruritus [Unknown]
  - Bronchitis [Unknown]
  - Lethargy [Unknown]
  - Joint swelling [Unknown]
  - Xerosis [Unknown]
  - Staphylococcal infection [Unknown]
  - Eczema [Unknown]
  - Nasal congestion [Unknown]
  - Cough [Unknown]
  - Decreased appetite [Unknown]
  - Dermatitis [Unknown]
  - Pulmonary valve incompetence [Unknown]
  - Cellulitis [Unknown]
  - Neoplasm malignant [Unknown]
  - Acarodermatitis [Unknown]
  - Nasal vestibulitis [Unknown]
  - Sunburn [Unknown]
  - Tachycardia [Unknown]
  - Constipation [Unknown]
  - Atelectasis [Unknown]
  - Cardiomegaly [Unknown]
  - Wound [Unknown]
  - Sneezing [Unknown]
  - Right ventricle outflow tract obstruction [Unknown]
  - Left-to-right cardiac shunt [Unknown]
  - Tricuspid valve incompetence [Unknown]
  - Mitral valve incompetence [Unknown]
  - Right ventricular hypertrophy [Unknown]
  - Skin infection [Unknown]
  - Pallor [Unknown]
  - Pustule [Unknown]
  - Molluscum contagiosum [Unknown]
  - Ventricular septal defect [Unknown]
  - Hypertrophic cardiomyopathy [Unknown]
  - Pain [Unknown]
  - Upper respiratory tract infection [Unknown]
  - Skin lesion [Unknown]
  - Pyrexia [Unknown]
  - Viral infection [Unknown]
  - Abdominal discomfort [Unknown]
  - Tachypnoea [Unknown]
  - Asthenia [Recovered/Resolved]
  - Heart disease congenital [Unknown]
  - Congenital hydronephrosis [Unknown]
  - Respiratory failure [Unknown]
  - Emotional distress [Unknown]
  - Post-traumatic stress disorder [Unknown]
  - Fall [Unknown]
  - Palpitations [Unknown]
  - Gastrooesophageal reflux disease [Recovered/Resolved]
  - Rhinorrhoea [Unknown]
  - Pulmonary valve stenosis congenital [Recovered/Resolved]
  - Congenital aortic stenosis [Unknown]
  - Transposition of the great vessels [Unknown]
  - Anhedonia [Unknown]
  - Abscess [Unknown]
  - Keratosis pilaris [Unknown]
  - Otitis media [Unknown]
  - Dyspnoea exertional [Unknown]
  - Fatigue [Unknown]
  - Asthma [Unknown]
  - Nervous system disorder [Unknown]
